FAERS Safety Report 5214840-2 (Version None)
Quarter: 2007Q1

REPORT INFORMATION
  Report Type: 
  Country: None (occurrence: None)
  Receive Date: 20070122
  Receipt Date: 20070122
  Transmission Date: 20070707
  Serious: Yes (Death)
  Sender: FDA-Public Use
  Company Number: None

PATIENT
  Age: 27 Year
  Sex: Male
  Weight: 120.2032 kg

DRUGS (1)
  1. CELEXA [Suspect]
     Indication: DISTURBANCE IN ATTENTION
     Dosage: DAILY PO
     Route: 048
     Dates: start: 20020115, end: 20041123

REACTIONS (3)
  - ANXIETY [None]
  - COMPLETED SUICIDE [None]
  - TREATMENT NONCOMPLIANCE [None]
